FAERS Safety Report 9961488 (Version 1)
Quarter: 2014Q1

REPORT INFORMATION
  Report Type: Report from Study
  Country: BR (occurrence: BR)
  Receive Date: 20140305
  Receipt Date: 20140305
  Transmission Date: 20141002
  Serious: Yes (Hospitalization, Other)
  Sender: FDA-Public Use
  Company Number: PHHY2014BR025327

PATIENT
  Age: 76 Year
  Sex: Female
  Weight: 52 kg

DRUGS (4)
  1. EXELON PATCH [Suspect]
     Indication: DEMENTIA ALZHEIMER^S TYPE
     Dosage: 4.6 MG, (9MG/5CM2 )
     Route: 062
  2. CEFIXIME [Concomitant]
     Indication: DEMENTIA ALZHEIMER^S TYPE
     Dosage: 1 DF, UNK
     Dates: start: 201301, end: 201303
  3. CARDIZEM [Concomitant]
     Indication: BLOOD PRESSURE
     Dosage: 90 MG, QD
     Dates: start: 201303
  4. METFORMIN [Concomitant]
     Indication: DIABETES MELLITUS
     Dosage: 3 DF, UNK

REACTIONS (4)
  - Metastases to central nervous system [Not Recovered/Not Resolved]
  - Convulsion [Not Recovered/Not Resolved]
  - Grip strength decreased [Not Recovered/Not Resolved]
  - Neoplasm malignant [Not Recovered/Not Resolved]
